FAERS Safety Report 4705408-2 (Version None)
Quarter: 2005Q3

REPORT INFORMATION
  Report Type: 
  Country: None (occurrence: None)
  Receive Date: 20050701
  Receipt Date: 20040203
  Transmission Date: 20060218
  Serious: Yes (Death, Hospitalization)
  Sender: FDA-Public Use
  Company Number: FR-GLAXOSMITHKLINE-B0321980A

PATIENT
  Age: 69 Year
  Sex: Female
  Weight: 60 kg

DRUGS (5)
  1. AUGMENTIN '125' [Suspect]
     Dosage: 3G PER DAY
     Route: 065
     Dates: start: 20031226, end: 20040106
  2. FRAXIPARINE [Suspect]
     Dosage: .6ML TWICE PER DAY
     Route: 058
     Dates: start: 20031226
  3. DEROXAT [Suspect]
     Dosage: 2UNIT PER DAY
     Route: 048
  4. HALDOL [Suspect]
     Dosage: 10MG PER DAY
     Route: 048
  5. SINTROM [Suspect]
     Dosage: 1UNIT UNKNOWN
     Route: 048
     Dates: start: 20031229

REACTIONS (4)
  - ABDOMINAL DISTENSION [None]
  - FLATULENCE [None]
  - INTESTINAL OBSTRUCTION [None]
  - TACHYCARDIA [None]
